FAERS Safety Report 14023175 (Version 1)
Quarter: 2017Q3

REPORT INFORMATION
  Report Type: Spontaneous
  Country: US (occurrence: US)
  Receive Date: 20170928
  Receipt Date: 20170928
  Transmission Date: 20171128
  Serious: No
  Sender: FDA-Public Use
  Company Number: US-SA-2016SA200509

PATIENT
  Age: 60 Year
  Sex: Female
  Weight: 59.87 kg

DRUGS (15)
  1. TYLENOL [Concomitant]
     Active Substance: ACETAMINOPHEN
  2. EMEND [Concomitant]
     Active Substance: APREPITANT
  3. REMERON [Concomitant]
     Active Substance: MIRTAZAPINE
  4. VITAMINS NOS/FERROUS SULFATE [Concomitant]
  5. LOSARTAN. [Concomitant]
     Active Substance: LOSARTAN
  6. AUBAGIO [Suspect]
     Active Substance: TERIFLUNOMIDE
     Indication: MULTIPLE SCLEROSIS
     Route: 048
     Dates: start: 20160928
  7. AMOXICILLIN. [Concomitant]
     Active Substance: AMOXICILLIN
  8. TUMS [Concomitant]
     Active Substance: CALCIUM CARBONATE
  9. VITAMIN D3 [Concomitant]
     Active Substance: CHOLECALCIFEROL
  10. CARVEDILOL. [Concomitant]
     Active Substance: CARVEDILOL
  11. WARFARIN [Concomitant]
     Active Substance: WARFARIN
  12. AUBAGIO [Suspect]
     Active Substance: TERIFLUNOMIDE
     Indication: MULTIPLE SCLEROSIS
     Route: 048
     Dates: start: 20160928
  13. UREA. [Concomitant]
     Active Substance: UREA
  14. VITAMIN C [Concomitant]
     Active Substance: ASCORBIC ACID
  15. ESTRACE [Concomitant]
     Active Substance: ESTRADIOL

REACTIONS (6)
  - Diarrhoea [Unknown]
  - Joint swelling [Unknown]
  - Hypoaesthesia [Recovering/Resolving]
  - Urticaria [Unknown]
  - Peripheral swelling [Recovered/Resolved]
  - Rash [Recovered/Resolved]

NARRATIVE: CASE EVENT DATE: 2016
